FAERS Safety Report 22528598 (Version 1)
Quarter: 2023Q2

REPORT INFORMATION
  Report Type: Spontaneous
  Country: NO (occurrence: NO)
  Receive Date: 20230607
  Receipt Date: 20230607
  Transmission Date: 20230721
  Serious: Yes (Other)
  Sender: FDA-Public Use
  Company Number: None

PATIENT
  Age: 78 Year
  Sex: Female

DRUGS (21)
  1. ALLOPURINOL [Suspect]
     Active Substance: ALLOPURINOL
     Indication: Gouty arthritis
     Dosage: 100 MG, QD
     Route: 065
     Dates: start: 202304, end: 202304
  2. ALLOPURINOL [Suspect]
     Active Substance: ALLOPURINOL
     Dosage: 50 MG, QD (REDUCED INITIAL DOSE OF 100 MG TO HALF AFTER 6 DAYS, BUT DISCONTINUED TREATMENT WITH ALLO
     Route: 065
     Dates: start: 202304, end: 202304
  3. ALBUTEROL [Concomitant]
     Active Substance: ALBUTEROL
     Indication: Asthma
     Dosage: 0.2 MG, PRN (0.2 MG UP TO 10 TIMES DAILY AS NEEDED)
     Route: 065
  4. EBASTINE [Concomitant]
     Active Substance: EBASTINE
     Indication: Rhinitis allergic
     Dosage: 5 MG, QD
     Route: 065
  5. EBASTINE [Concomitant]
     Active Substance: EBASTINE
     Indication: Hypersensitivity
  6. LIVOSTIN [Concomitant]
     Active Substance: LEVOCABASTINE HYDROCHLORIDE
     Indication: Hypersensitivity
     Dosage: 200 UG, Q12H (TWO SPRAYS IN EACH NOSTRIL TWICE DAILY.)
     Route: 065
  7. LIVOSTIN [Concomitant]
     Active Substance: LEVOCABASTINE HYDROCHLORIDE
     Indication: Conjunctivitis allergic
     Dosage: 1 DRP, QID (1 GTT IN EACH EYE UP TO FOUR TIMES DAILY)
     Route: 065
  8. LERCANIDIPINE HYDROCHLORIDE [Concomitant]
     Active Substance: LERCANIDIPINE HYDROCHLORIDE
     Indication: Hypertension
     Dosage: 10 MG, Q24H (MORNING)
     Route: 065
  9. METOPROLOL TARTRATE [Concomitant]
     Active Substance: METOPROLOL TARTRATE
     Indication: Tachycardia paroxysmal
     Dosage: 100 MG, QD
     Route: 065
  10. METOPROLOL TARTRATE [Concomitant]
     Active Substance: METOPROLOL TARTRATE
     Indication: Hypertension
  11. METFORMIN ORIFARM [Concomitant]
     Indication: Type 2 diabetes mellitus
     Dosage: 500 MG, Q24H (MORNING)
     Route: 065
  12. ATACAND [Concomitant]
     Active Substance: CANDESARTAN CILEXETIL
     Indication: Hypertension
     Dosage: 32 MG, QD
     Route: 065
  13. LANSOPRAZOL KRKA [Concomitant]
     Indication: Oesophageal disorder
     Dosage: 30 MG, QD
     Route: 065
  14. INUXAIR [Concomitant]
     Indication: Asthma
     Dosage: 1 DOSAGE FORM, Q12H
     Route: 065
  15. VI-SIBLIN [Concomitant]
     Indication: Constipation
     Dosage: UNK
     Route: 065
  16. ESTRIOL [Concomitant]
     Active Substance: ESTRIOL
     Indication: Hormone replacement therapy
     Dosage: 1 MG, QD
     Route: 065
  17. UREA [Concomitant]
     Active Substance: UREA
     Indication: Eczema
     Dosage: UNK
     Route: 065
  18. SPERSALLERG [Concomitant]
     Indication: Conjunctivitis allergic
     Dosage: 1 DRP, BID (1 GTT IN EACH EYE TWICE DAILY)
     Route: 065
  19. SPERSALLERG [Concomitant]
     Indication: Hypersensitivity
  20. CRESTOR [Concomitant]
     Active Substance: ROSUVASTATIN CALCIUM
     Indication: Hypercholesterolaemia
     Dosage: UNK
     Route: 065
  21. CHOLECALCIFEROL [Concomitant]
     Active Substance: CHOLECALCIFEROL
     Indication: Vitamin supplementation
     Dosage: 800 IU, QD
     Route: 065

REACTIONS (4)
  - Ocular discomfort [Recovered/Resolved]
  - Conjunctival haemorrhage [Recovered/Resolved]
  - Vision blurred [Recovered/Resolved]
  - Skin haemorrhage [Recovered/Resolved]

NARRATIVE: CASE EVENT DATE: 20230401
